FAERS Safety Report 10181026 (Version 1)
Quarter: 2014Q2

REPORT INFORMATION
  Report Type: Spontaneous
  Country: US (occurrence: US)
  Receive Date: 20140519
  Receipt Date: 20140519
  Transmission Date: 20141212
  Serious: No
  Sender: FDA-Public Use
  Company Number: US-AMGEN INC.-USASP2014016092

PATIENT
  Age: 81 Year
  Sex: Female

DRUGS (8)
  1. PROLIA [Suspect]
     Indication: PRODUCT USED FOR UNKNOWN INDICATION
     Route: 065
  2. LEVOTHROID [Concomitant]
  3. OMEPRAZOLE [Concomitant]
  4. AMLODIPINE BESYLATE [Concomitant]
  5. PRAVASTATIN [Concomitant]
  6. OXYBUTYNIN [Concomitant]
  7. DIAZEPAM [Concomitant]
     Indication: VERTIGO
  8. CALCIUM [Concomitant]

REACTIONS (2)
  - Pruritus [Unknown]
  - Erythema [Unknown]
